FAERS Safety Report 5534504-5 (Version None)
Quarter: 2007Q4

REPORT INFORMATION
  Report Type: 
  Country: None (occurrence: None)
  Receive Date: 20071204
  Receipt Date: 20071204
  Transmission Date: 20080405
  Serious: Yes (Disabling)
  Sender: FDA-Public Use
  Company Number: None

PATIENT
  Age: 45 Year
  Sex: Male
  Weight: 95.2554 kg

DRUGS (1)
  1. SULFAMETHOXAZOLE AND TRIMETHOPRIM [Suspect]
     Indication: PROSTATITIS
     Dosage: ONE TABLET  2XDAY  FOR 10 DAYS  PO
     Route: 048
     Dates: start: 20071111, end: 20071121

REACTIONS (23)
  - ANOREXIA [None]
  - ARTHRALGIA [None]
  - ASTHENIA [None]
  - AUTOIMMUNE DISORDER [None]
  - CONDITION AGGRAVATED [None]
  - DEPRESSION [None]
  - DRY EYE [None]
  - FATIGUE [None]
  - FEELING ABNORMAL [None]
  - HALLUCINATION [None]
  - HEADACHE [None]
  - INDIFFERENCE [None]
  - INITIAL INSOMNIA [None]
  - MIDDLE INSOMNIA [None]
  - MULTIPLE ALLERGIES [None]
  - MYALGIA [None]
  - NAUSEA [None]
  - NERVOUSNESS [None]
  - PALPITATIONS [None]
  - PHOTOSENSITIVITY REACTION [None]
  - PYREXIA [None]
  - STRESS [None]
  - VISUAL ACUITY REDUCED [None]
